FAERS Safety Report 9996563 (Version 1)
Quarter: 2014Q1

REPORT INFORMATION
  Report Type: Spontaneous
  Country: US (occurrence: US)
  Receive Date: 20140311
  Receipt Date: 20140311
  Transmission Date: 20141002
  Serious: Yes (Other)
  Sender: FDA-Public Use
  Company Number: US-009507513-1403USA003439

PATIENT
  Sex: Female

DRUGS (8)
  1. PROVENTIL [Suspect]
     Indication: ASTHMA
     Dosage: UNK, PRN
     Route: 055
  2. FOSAMAX [Concomitant]
  3. ALTACE [Concomitant]
  4. LIPITOR [Concomitant]
  5. GABAPENTIN [Concomitant]
  6. DOLOBID [Concomitant]
  7. ASPIRIN [Concomitant]
  8. CALCIUM (UNSPECIFIED) (+) VITAMIN D (UNSPECIFIED) [Concomitant]

REACTIONS (4)
  - Retinal operation [Recovering/Resolving]
  - Visual impairment [Recovering/Resolving]
  - Retinal tear [Recovering/Resolving]
  - Product quality issue [Unknown]
